FAERS Safety Report 5166615-0 (Version None)
Quarter: 2006Q4

REPORT INFORMATION
  Report Type: 
  Country: None (occurrence: None)
  Receive Date: 20061207
  Receipt Date: 20061124
  Transmission Date: 20070319
  Serious: Yes (Hospitalization)
  Sender: FDA-Public Use
  Company Number: FRWYE642224NOV06

PATIENT
  Age: 54 Year
  Sex: Female
  Weight: 42 kg

DRUGS (9)
  1. ENBREL [Suspect]
     Indication: RHEUMATOID ARTHRITIS
     Route: 058
     Dates: start: 20050615, end: 20060901
  2. INIPOMP [Concomitant]
     Route: 048
  3. ACETAMINOPHEN W/ PROPOXYPHENE HCL [Concomitant]
     Dosage: 2 TABLETS ON REQUEST
     Route: 048
  4. SPECIAFOLDINE [Concomitant]
     Route: 065
  5. TARDYFERON [Concomitant]
     Route: 065
  6. FOSAMAX [Concomitant]
     Route: 065
  7. CALCIUM LACTATE/CALCIUM PHOSPHATE/ERGOCALCIFEROL [Concomitant]
     Dosage: 1 UNIT TOTAL DAILY
     Route: 065
  8. ARTHROTEC [Concomitant]
     Route: 048
  9. TORENTAL [Concomitant]
     Route: 065

REACTIONS (4)
  - ABSCESS [None]
  - GENERAL PHYSICAL HEALTH DETERIORATION [None]
  - PRODUCTIVE COUGH [None]
  - SEPTIC ARTHRITIS STAPHYLOCOCCAL [None]
